FAERS Safety Report 7589496-4 (Version None)
Quarter: 2011Q2

REPORT INFORMATION
  Report Type: 
  Country: None (occurrence: None)
  Receive Date: 20110627
  Receipt Date: 20110620
  Transmission Date: 20111010
  Serious: No
  Sender: FDA-Public Use
  Company Number: LTI2011A00157

PATIENT
  Age: 66 Year
  Sex: Male

DRUGS (1)
  1. ACTOS [Suspect]
     Indication: TYPE 2 DIABETES MELLITUS
     Dosage: 30 MG (30MG 1 IN 1 D)
     Route: 048
     Dates: start: 20071201

REACTIONS (2)
  - BLADDER CANCER [None]
  - LUNG NEOPLASM MALIGNANT [None]
